FAERS Safety Report 8181272-7 (Version None)
Quarter: 2012Q1

REPORT INFORMATION
  Report Type: 
  Country: None (occurrence: None)
  Receive Date: 20120126
  Receipt Date: 20111017
  Transmission Date: 20120608
  Serious: Yes (Other)
  Sender: FDA-Public Use
  Company Number: PHEH2011US05563

PATIENT
  Age: 71 Year
  Sex: Female
  Weight: 68.9 kg

DRUGS (9)
  1. FISH OIL (FISH OIL) CAPSULE [Concomitant]
  2. SYNTHROID [Concomitant]
  3. VITAMINS NOS (VITAMINS NOS) [Concomitant]
  4. LISINOPRIL [Concomitant]
  5. BENICAR HCT [Concomitant]
  6. ASPIRIN N (ACETYLSALICYLIC ACID) TABLET [Concomitant]
  7. PRAVACHOL [Concomitant]
  8. AFINITOR [Suspect]
     Indication: MALIGNANT URINARY TRACT NEOPLASM
     Dosage: 10 MG, DAILY, ORAL
     Route: 048
     Dates: start: 20110913
  9. BISOPROLOL FUMARATE AND HYDROCHLOROTHIAZIDE [Concomitant]

REACTIONS (5)
  - MUCOSAL INFLAMMATION [None]
  - HYPERGLYCAEMIA [None]
  - STOMATITIS [None]
  - ASPARTATE AMINOTRANSFERASE INCREASED [None]
  - BLOOD PRESSURE INCREASED [None]
